FAERS Safety Report 7190437-2 (Version None)
Quarter: 2010Q4

REPORT INFORMATION
  Report Type: 
  Country: None (occurrence: None)
  Receive Date: 20101223
  Receipt Date: 20101213
  Transmission Date: 20110411
  Serious: Yes (Other)
  Sender: FDA-Public Use
  Company Number: TR-ELI_LILLY_AND_COMPANY-TR201012004172

PATIENT
  Age: 73 Year
  Sex: Male

DRUGS (4)
  1. HUMALOG MIX 75/25 [Suspect]
     Indication: DIABETES MELLITUS
     Dosage: 24 U, EACH MORNING
     Route: 058
     Dates: start: 20101206
  2. HUMALOG MIX 75/25 [Suspect]
     Dosage: 12 U, EACH EVENING
     Route: 058
     Dates: start: 20101206
  3. CORASPIN [Concomitant]
     Dosage: UNK, DAILY (1/D)
  4. LIPANTHYL [Concomitant]
     Dosage: UNK, DAILY (1/D)

REACTIONS (3)
  - ASTHENIA [None]
  - BLOOD GLUCOSE ABNORMAL [None]
  - SYNCOPE [None]
